FAERS Safety Report 8718165 (Version 3)
Quarter: 2013Q1

REPORT INFORMATION
  Report Type: Report from Study
  Country: JP (occurrence: JP)
  Receive Date: 20120810
  Receipt Date: 20130208
  Transmission Date: 20140127
  Serious: Yes (Death, Life-Threatening)
  Sender: FDA-Public Use
  Company Number: JP-AMGEN-JPNCT2012050223

PATIENT
  Age: 75 Year
  Sex: Male
  Weight: 67 kg

DRUGS (13)
  1. DARBEPOETIN ALFA [Suspect]
     Indication: NEPHROGENIC ANAEMIA
     Dosage: 60 MUG, Q4WK
     Route: 058
     Dates: start: 20111004, end: 20120918
  2. FLIVAS [Concomitant]
     Dosage: UNK
     Route: 048
  3. STAYBLA [Concomitant]
     Dosage: UNK
     Route: 048
  4. ZOLADEX [Concomitant]
     Dosage: UNK
     Route: 042
  5. ZYLORIC [Concomitant]
     Dosage: UNK
     Route: 048
  6. LIPITOR [Concomitant]
     Dosage: UNK
     Route: 048
  7. TANATRIL [Concomitant]
     Dosage: UNK
     Route: 048
  8. ATELEC [Concomitant]
     Dosage: UNK
     Route: 048
  9. DIOVAN [Concomitant]
     Dosage: UNK
     Route: 048
  10. AMLODIN [Concomitant]
     Dosage: UNK
     Route: 048
  11. LASIX [Concomitant]
     Dosage: UNK
     Route: 048
  12. ARGAMATE [Concomitant]
     Dosage: UNK
     Route: 048
  13. LEUPLIN [Concomitant]
     Dosage: UNK
     Route: 042

REACTIONS (2)
  - Lung neoplasm malignant [Fatal]
  - Gastrooesophageal reflux disease [Unknown]
